FAERS Safety Report 6525968-9 (Version None)
Quarter: 2010Q1

REPORT INFORMATION
  Report Type: 
  Country: None (occurrence: None)
  Receive Date: 20100104
  Receipt Date: 20091228
  Transmission Date: 20100710
  Serious: Yes (Hospitalization, Other)
  Sender: FDA-Public Use
  Company Number: PHHO2009JP01653

PATIENT
  Sex: Male
  Weight: 93 kg

DRUGS (20)
  1. CERTICAN [Suspect]
     Indication: RENAL TRANSPLANT
     Dosage: 0.75 MG, BID
     Route: 048
     Dates: start: 20081203
  2. NEORAL [Suspect]
     Indication: RENAL TRANSPLANT
     Dosage: 400 MG DAILY
     Route: 048
     Dates: start: 20081203, end: 20081207
  3. NEORAL [Suspect]
     Dosage: 350 MG DAILY
     Route: 048
     Dates: start: 20081208, end: 20081208
  4. NEORAL [Suspect]
     Dosage: 325 MG DAILY
     Route: 048
     Dates: start: 20081209, end: 20081209
  5. NEORAL [Suspect]
     Dosage: 300 MG DAILY
     Route: 048
     Dates: start: 20081210, end: 20081218
  6. NEORAL [Suspect]
     Dosage: 250 MG DAILY
     Route: 048
     Dates: start: 20081219, end: 20081226
  7. NEORAL [Suspect]
     Dosage: 225 MG DAILY
     Route: 048
     Dates: start: 20081227, end: 20090104
  8. NEORAL [Suspect]
     Dosage: 200 MG DAILY
     Route: 048
     Dates: start: 20090105, end: 20090329
  9. NEORAL [Suspect]
     Dosage: 150 MG DAILY
     Route: 048
     Dates: start: 20090330
  10. BAKTAR [Suspect]
     Dosage: 1DF
     Route: 048
     Dates: start: 20090202
  11. MICARDIS [Suspect]
     Dosage: 100 MG, BID
     Route: 048
     Dates: start: 20090330
  12. HALIZON [Suspect]
     Dosage: UNK
  13. PROTECADIN [Suspect]
     Dosage: UNK
  14. LIPITOR [Suspect]
     Dosage: UNK
  15. ADALAT [Suspect]
     Dosage: UNK
  16. SIMULECT [Concomitant]
     Indication: RENAL TRANSPLANT
     Dosage: 20 MG, ONCE/SINGLE
     Route: 048
     Dates: start: 20081202, end: 20081202
  17. SIMULECT [Concomitant]
     Dosage: 20 MG, ONCE/SINGLE
     Route: 048
     Dates: start: 20081206, end: 20081206
  18. PREDNISOLONE [Concomitant]
     Indication: RENAL TRANSPLANT
     Dosage: 50 MG DAILY
     Route: 048
     Dates: start: 20081203
  19. PREDNISOLONE [Concomitant]
     Dosage: 10 MG DAILY
     Route: 048
     Dates: start: 20090205
  20. ISODINE [Concomitant]

REACTIONS (11)
  - ABSCESS [None]
  - BLOOD CREATININE INCREASED [None]
  - CHRONIC ALLOGRAFT NEPHROPATHY [None]
  - EFFUSION [None]
  - FLUID RETENTION [None]
  - IMPAIRED HEALING [None]
  - NEPHROPATHY [None]
  - PYREXIA [None]
  - RENAL DISORDER [None]
  - WOUND DECOMPOSITION [None]
  - WOUND DRAINAGE [None]
